FAERS Safety Report 9509279 (Version 1)
Quarter: 2013Q3

REPORT INFORMATION
  Report Type: Spontaneous
  Country: US (occurrence: US)
  Receive Date: 20130909
  Receipt Date: 20130909
  Transmission Date: 20140515
  Serious: No
  Sender: FDA-Public Use
  Company Number: US-BRISTOL-MYERS SQUIBB COMPANY-17329079

PATIENT
  Age: 58 Year
  Sex: Male
  Weight: 83.9 kg

DRUGS (1)
  1. ABILIFY [Suspect]
     Dosage: RSTARTED ABILIFY 2MG:13MAY2012,

REACTIONS (3)
  - Weight increased [Unknown]
  - Tremor [Recovering/Resolving]
  - Urine odour abnormal [Recovering/Resolving]
